FAERS Safety Report 10261947 (Version 6)
Quarter: 2014Q3

REPORT INFORMATION
  Report Type: Report from Study
  Country: US (occurrence: US)
  Receive Date: 20140626
  Receipt Date: 20140919
  Transmission Date: 20150326
  Serious: Yes (Death, Life-Threatening, Hospitalization, Other)
  Sender: FDA-Public Use
  Company Number: US-ACTELION-A-NJ2014-100673

PATIENT
  Age: 86 Year
  Sex: Female

DRUGS (4)
  1. SILDENAFIL [Concomitant]
     Active Substance: SILDENAFIL
  2. TRACLEER [Suspect]
     Active Substance: BOSENTAN\BOSENTAN MONOHYDRATE
     Indication: PULMONARY ARTERIAL HYPERTENSION
     Dosage: 125 MG, BID
     Route: 048
     Dates: start: 20100120, end: 20140902
  3. TRACLEER [Suspect]
     Active Substance: BOSENTAN\BOSENTAN MONOHYDRATE
     Dosage: 62.5 MG, BID
     Route: 048
     Dates: start: 2009, end: 20100119
  4. COUMADIN [Concomitant]
     Active Substance: WARFARIN SODIUM

REACTIONS (11)
  - Haematoma [Unknown]
  - Fluid retention [Recovering/Resolving]
  - Cardiac failure [Fatal]
  - Cellulitis [Unknown]
  - Fall [Recovering/Resolving]
  - Dehydration [Recovering/Resolving]
  - Renal failure [Fatal]
  - Pneumonia [Fatal]
  - Urinary tract infection [Recovering/Resolving]
  - Haemoglobin decreased [Recovering/Resolving]
  - Transfusion [Recovering/Resolving]

NARRATIVE: CASE EVENT DATE: 20140701
